FAERS Safety Report 14430820 (Version 2)
Quarter: 2018Q1

REPORT INFORMATION
  Report Type: Spontaneous
  Country: JP (occurrence: JP)
  Receive Date: 20180124
  Receipt Date: 20180216
  Transmission Date: 20180509
  Serious: Yes (Hospitalization, Other)
  Sender: FDA-Public Use
  Company Number: JP-VISTAPHARM, INC.-VER201801-000193

PATIENT
  Age: 3 Year
  Sex: Female

DRUGS (1)
  1. HYDROCODONE AND ACETAMINOPHEN [Suspect]
     Active Substance: ACETAMINOPHEN\HYDROCODONE
     Indication: PYREXIA
     Dosage: APPROXIMATELY 7.7 MG/KG/DOSE (2 TOTAL DOSES OVER 8 H)
     Route: 054

REACTIONS (2)
  - Acute kidney injury [Recovering/Resolving]
  - Chronic kidney disease [Unknown]
